FAERS Safety Report 23127679 (Version 1)
Quarter: 2023Q4

REPORT INFORMATION
  Report Type: Spontaneous
  Country: US (occurrence: US)
  Receive Date: 20231031
  Receipt Date: 20231031
  Transmission Date: 20240109
  Serious: Yes (Other)
  Sender: FDA-Public Use
  Company Number: US-ALKEM LABORATORIES LIMITED-US-ALKEM-2023-13032

PATIENT
  Sex: Female

DRUGS (1)
  1. OXYCODONE HYDROCHLORIDE [Suspect]
     Active Substance: OXYCODONE HYDROCHLORIDE
     Indication: Product used for unknown indication
     Dosage: UNK (34 TABLETS)
     Route: 048

REACTIONS (5)
  - Deafness neurosensory [Unknown]
  - Paraplegia [Unknown]
  - Respiratory failure [Unknown]
  - Overdose [Unknown]
  - Intentional product misuse [Unknown]
